FAERS Safety Report 20098569 (Version 1)
Quarter: 2021Q4

REPORT INFORMATION
  Report Type: Spontaneous
  Country: US (occurrence: None)
  Receive Date: 20211119
  Receipt Date: 20211119
  Transmission Date: 20220303
  Serious: No
  Sender: FDA-Public Use
  Company Number: None

PATIENT

DRUGS (2)
  1. AMLODIPINE [Suspect]
     Active Substance: AMLODIPINE BESYLATE
  2. ATORVASTATIN CALCIUM [Suspect]
     Active Substance: ATORVASTATIN CALCIUM

REACTIONS (7)
  - Wrong product administered [None]
  - Product name confusion [None]
  - Drug monitoring procedure not performed [None]
  - Product storage error [None]
  - Product name confusion [None]
  - Product selection error [None]
  - Product dispensing error [None]
